FAERS Safety Report 21258045 (Version 12)
Quarter: 2024Q2

REPORT INFORMATION
  Report Type: Report from Study
  Country: ZA (occurrence: ZA)
  Receive Date: 20220826
  Receipt Date: 20240513
  Transmission Date: 20240715
  Serious: Yes (Other)
  Sender: FDA-Public Use
  Company Number: ZA-CELLTRION INC.-2021ZA012410

PATIENT

DRUGS (14)
  1. INFLIXIMAB [Suspect]
     Active Substance: INFLIXIMAB
     Indication: Crohn^s disease
     Dosage: 300 MG, (0 WEEKS)
     Route: 042
     Dates: start: 20210301
  2. INFLIXIMAB [Suspect]
     Active Substance: INFLIXIMAB
     Indication: Colitis ulcerative
     Dosage: 300 MG, (2 WEEKS)
     Route: 042
     Dates: start: 20210420
  3. INFLIXIMAB [Suspect]
     Active Substance: INFLIXIMAB
     Dosage: 300 MG, (6 WEEKS)
     Route: 042
     Dates: start: 20210504
  4. INFLIXIMAB [Suspect]
     Active Substance: INFLIXIMAB
     Dosage: 300 MG, (8 WEEKLY)
     Route: 042
     Dates: start: 20210531
  5. INFLIXIMAB [Suspect]
     Active Substance: INFLIXIMAB
     Dosage: 300 MG, (8 WEEKLY)
     Route: 042
     Dates: start: 20210726
  6. INFLIXIMAB [Suspect]
     Active Substance: INFLIXIMAB
     Dosage: 300 MG, (8 WEEKLY)
     Route: 042
     Dates: start: 20210925
  7. INFLIXIMAB [Suspect]
     Active Substance: INFLIXIMAB
     Dosage: 300 MG (EVERY 8 WEEKS)
     Route: 042
  8. INFLIXIMAB [Suspect]
     Active Substance: INFLIXIMAB
     Dosage: 400 MG (LOADING DOSE AS FOLLOWS 0 WEEKS, 2 WEEKS THEN 6 WEEK INTERVALS)
     Route: 042
  9. INFLIXIMAB [Suspect]
     Active Substance: INFLIXIMAB
     Dosage: UNK
     Route: 042
     Dates: start: 20220907
  10. INFLIXIMAB [Suspect]
     Active Substance: INFLIXIMAB
     Dosage: UNK
     Route: 042
     Dates: start: 20230517
  11. PENTASA [Concomitant]
     Active Substance: MESALAMINE
     Indication: Crohn^s disease
     Dosage: 2 G, BD
  12. INFLIXIMAB [Concomitant]
     Active Substance: INFLIXIMAB
     Indication: Crohn^s disease
  13. AZATHIOPRINE [Concomitant]
     Active Substance: AZATHIOPRINE
     Indication: Crohn^s disease
  14. SULFASALAZINE [Concomitant]
     Active Substance: SULFASALAZINE
     Indication: Crohn^s disease

REACTIONS (29)
  - Crohn^s disease [Recovering/Resolving]
  - Colon operation [Recovering/Resolving]
  - Sinus congestion [Recovering/Resolving]
  - Anal sphincter atony [Recovering/Resolving]
  - Colostomy closure [Recovering/Resolving]
  - Joint stiffness [Recovering/Resolving]
  - Arthralgia [Recovering/Resolving]
  - Abdominal pain [Unknown]
  - Abdominal pain upper [Recovered/Resolved]
  - Eczema [Recovered/Resolved]
  - Vision blurred [Recovering/Resolving]
  - Dizziness [Recovering/Resolving]
  - Cough [Recovering/Resolving]
  - Hot flush [Recovering/Resolving]
  - Fatigue [Recovered/Resolved]
  - Fatigue [Recovered/Resolved]
  - Dyspnoea [Unknown]
  - Rash [Unknown]
  - Pruritus [Recovered/Resolved]
  - Back pain [Recovering/Resolving]
  - Headache [Recovering/Resolving]
  - Influenza [Recovered/Resolved]
  - Somnolence [Recovering/Resolving]
  - Influenza like illness [Recovering/Resolving]
  - Gastroenteritis [Unknown]
  - Diarrhoea [Recovered/Resolved]
  - Treatment delayed [Unknown]
  - Underdose [Unknown]
  - Overdose [Unknown]

NARRATIVE: CASE EVENT DATE: 20211122
